FAERS Safety Report 9831901 (Version 3)
Quarter: 2014Q1

REPORT INFORMATION
  Report Type: Spontaneous
  Country: US (occurrence: US)
  Receive Date: 20140121
  Receipt Date: 20140207
  Transmission Date: 20141002
  Serious: Yes (Hospitalization)
  Sender: FDA-Public Use
  Company Number: US-PFIZER INC-2014014395

PATIENT
  Age: 68 Year
  Sex: Female
  Weight: 57.3 kg

DRUGS (4)
  1. XALKORI [Suspect]
     Indication: LUNG ADENOCARCINOMA
     Dosage: 250 MG, 2X/DAY
     Route: 048
     Dates: start: 20131106
  2. XALKORI [Suspect]
     Dosage: HALF THE PRESCRIBED DOSE (50 % DOSE REDUCTION)
  3. BAYER ADVANCED ASPIRIN EXTRA STRENGTH [Concomitant]
     Dosage: 500 MG, AS DIRECTED 0 DAYS, 0 REFILL (USED MIGRAIN VERSION)
  4. COMPAZINE [Concomitant]
     Indication: NAUSEA
     Dosage: 10 MG, AS NEEDED (AS DIRECTED, ONE EVERY 6 HRS PRN) 30 DAYS, 2 REFILLS
     Route: 048

REACTIONS (25)
  - Diverticulitis [Unknown]
  - Azotaemia [Unknown]
  - Colitis [Unknown]
  - Nausea [Unknown]
  - Diarrhoea [Unknown]
  - Dehydration [Unknown]
  - Electrolyte imbalance [Unknown]
  - Vomiting [Recovered/Resolved]
  - Diarrhoea [Recovered/Resolved]
  - Dizziness [Unknown]
  - Quality of life decreased [Unknown]
  - Hypophagia [Recovered/Resolved]
  - Nausea [Recovered/Resolved]
  - Visual impairment [Unknown]
  - Malaise [Unknown]
  - Dry skin [Recovered/Resolved]
  - Dry throat [Unknown]
  - Depressed mood [Recovered/Resolved]
  - Dehydration [Recovered/Resolved]
  - Asthenia [Unknown]
  - Balance disorder [Unknown]
  - Weight decreased [Unknown]
  - Oedema peripheral [Recovered/Resolved]
  - Poor quality sleep [Unknown]
  - Vision blurred [Unknown]
